FAERS Safety Report 21666046 (Version 1)
Quarter: 2022Q4

REPORT INFORMATION
  Report Type: Spontaneous
  Country: US (occurrence: US)
  Receive Date: 20221201
  Receipt Date: 20221201
  Transmission Date: 20230112
  Serious: No
  Sender: FDA-Public Use
  Company Number: US-ABBVIE-4176213

PATIENT
  Sex: Female

DRUGS (1)
  1. RINVOQ [Suspect]
     Active Substance: UPADACITINIB
     Indication: Colitis ulcerative
     Route: 048

REACTIONS (8)
  - Pain [Not Recovered/Not Resolved]
  - Acne [Unknown]
  - Mood swings [Unknown]
  - Cushingoid [Unknown]
  - Arthralgia [Unknown]
  - Alopecia [Unknown]
  - Tremor [Unknown]
  - Night sweats [Unknown]
